FAERS Safety Report 21373914 (Version 1)
Quarter: 2022Q3

REPORT INFORMATION
  Report Type: Spontaneous
  Country: US (occurrence: US)
  Receive Date: 20220926
  Receipt Date: 20220926
  Transmission Date: 20221027
  Serious: Yes (Other)
  Sender: FDA-Public Use
  Company Number: US-ABBVIE-4128690

PATIENT
  Age: 68 Year
  Sex: Female

DRUGS (2)
  1. HUMIRA [Suspect]
     Active Substance: ADALIMUMAB
     Indication: Rheumatoid arthritis
     Dosage: DISCONTINUED
     Route: 058
     Dates: end: 2020
  2. HUMIRA [Suspect]
     Active Substance: ADALIMUMAB
     Route: 058
     Dates: start: 202203

REACTIONS (23)
  - Cardiac failure [Unknown]
  - Skin ulcer haemorrhage [Not Recovered/Not Resolved]
  - Limb mass [Not Recovered/Not Resolved]
  - Injection site haemorrhage [Unknown]
  - Wrong technique in product usage process [Not Recovered/Not Resolved]
  - Injection site pain [Recovered/Resolved]
  - Injection site pain [Unknown]
  - Tremor [Unknown]
  - Rheumatoid arthritis [Unknown]
  - Injection site erythema [Unknown]
  - Grip strength decreased [Unknown]
  - Injection site swelling [Recovered/Resolved]
  - Blood potassium increased [Unknown]
  - Burning sensation [Not Recovered/Not Resolved]
  - Irritability [Unknown]
  - Hypertension [Unknown]
  - Injection site laceration [Recovering/Resolving]
  - Renal failure [Unknown]
  - Pericardial effusion [Recovering/Resolving]
  - Pain [Not Recovered/Not Resolved]
  - Feeling abnormal [Unknown]
  - Drug ineffective [Unknown]
  - Gait disturbance [Not Recovered/Not Resolved]

NARRATIVE: CASE EVENT DATE: 20220901
